FAERS Safety Report 6017111-X (Version None)
Quarter: 2008Q4

REPORT INFORMATION
  Report Type: 
  Country: None (occurrence: None)
  Receive Date: 20081223
  Receipt Date: 20081219
  Transmission Date: 20090506
  Serious: Yes (Hospitalization)
  Sender: FDA-Public Use
  Company Number: FR-ASTRAZENECA-2008CG01882

PATIENT
  Age: 31638 Day
  Sex: Female

DRUGS (11)
  1. ATACAND [Suspect]
     Indication: HYPERTENSION
     Route: 048
  2. ZOLPIDEM [Suspect]
     Indication: INSOMNIA
     Route: 048
     Dates: end: 20080601
  3. STABLON [Suspect]
     Indication: DEPRESSION
     Route: 048
     Dates: end: 20080414
  4. STABLON [Suspect]
     Route: 048
     Dates: start: 20080415, end: 20080620
  5. HALDOL FAIBLE [Suspect]
     Indication: THYMUS DISORDER
     Route: 002
     Dates: start: 20080415, end: 20080601
  6. TEMESTA [Suspect]
     Indication: ANXIETY
     Route: 048
     Dates: end: 20080601
  7. INIPOMP [Concomitant]
     Route: 048
  8. DITROPAN [Concomitant]
     Route: 048
  9. TITANOREINE [Concomitant]
     Route: 003
  10. PROCTOLOG [Concomitant]
     Route: 054
  11. POLY-KARAYA [Concomitant]
     Route: 048

REACTIONS (2)
  - FALL [None]
  - FINE MOTOR DELAY [None]
